FAERS Safety Report 5924912-2 (Version None)
Quarter: 2008Q4

REPORT INFORMATION
  Report Type: 
  Country: None (occurrence: None)
  Receive Date: 20081017
  Receipt Date: 20081017
  Transmission Date: 20090506
  Serious: Yes (Disabling, Other)
  Sender: FDA-Public Use
  Company Number: None

PATIENT
  Age: 28 Year
  Sex: Male
  Weight: 79.3795 kg

DRUGS (1)
  1. CHANTIX [Suspect]
     Indication: SMOKING CESSATION THERAPY
     Dosage: 1 TWICE DAILY PO
     Route: 048
     Dates: start: 20080725, end: 20081001

REACTIONS (5)
  - DEPRESSION [None]
  - DEPRESSION SUICIDAL [None]
  - MANIA [None]
  - REBOUND EFFECT [None]
  - SUICIDAL BEHAVIOUR [None]
